FAERS Safety Report 22824736 (Version 3)
Quarter: 2023Q4

REPORT INFORMATION
  Report Type: Report from Study
  Country: US (occurrence: US)
  Receive Date: 20230815
  Receipt Date: 20231031
  Transmission Date: 20240109
  Serious: No
  Sender: FDA-Public Use
  Company Number: US-LUNDBECK-DKLU3065875

PATIENT
  Age: 51 Year
  Sex: Female

DRUGS (1)
  1. VYEPTI [Suspect]
     Active Substance: EPTINEZUMAB-JJMR
     Indication: Migraine
     Route: 041
     Dates: start: 20230707

REACTIONS (3)
  - Drug ineffective [Not Recovered/Not Resolved]
  - Migraine [Unknown]
  - Malaise [Unknown]

NARRATIVE: CASE EVENT DATE: 20231010
